FAERS Safety Report 10247961 (Version 1)
Quarter: 2014Q2

REPORT INFORMATION
  Report Type: Report from Study
  Country: US (occurrence: US)
  Receive Date: 20140619
  Receipt Date: 20140619
  Transmission Date: 20141212
  Serious: Yes (Hospitalization)
  Sender: FDA-Public Use
  Company Number: US-ACTELION-A-NJ2014-100330

PATIENT
  Age: 38 Year
  Sex: Female

DRUGS (3)
  1. VELETRI [Suspect]
     Indication: PULMONARY ARTERIAL HYPERTENSION
     Dosage: 1.5 MG, UNK
     Route: 042
     Dates: start: 20140312
  2. FLOLAN [Concomitant]
  3. COUMADIN [Concomitant]

REACTIONS (2)
  - Pneumothorax [Unknown]
  - Pneumonia [Unknown]
